FAERS Safety Report 6161581-3 (Version None)
Quarter: 2009Q2

REPORT INFORMATION
  Report Type: 
  Country: None (occurrence: None)
  Receive Date: 20090421
  Receipt Date: 20090415
  Transmission Date: 20091009
  Serious: Yes (Other)
  Sender: FDA-Public Use
  Company Number: JP-AVENTIS-200911115JP

PATIENT
  Sex: Female

DRUGS (1)
  1. ALLEGRA [Suspect]
     Dates: start: 20090402, end: 20090404

REACTIONS (1)
  - SWELLING FACE [None]
